FAERS Safety Report 7990952-5 (Version None)
Quarter: 2011Q4

REPORT INFORMATION
  Report Type: 
  Country: None (occurrence: None)
  Receive Date: 20111215
  Receipt Date: 20111205
  Transmission Date: 20120403
  Serious: Yes (Hospitalization)
  Sender: FDA-Public Use
  Company Number: LTI2011A00309

PATIENT
  Age: 64 Year
  Sex: Male

DRUGS (5)
  1. LANSOPRAZOLE [Suspect]
     Dosage: 1 DF (1 DF, 1 IN 1 AS REQUIRED)
     Route: 048
     Dates: start: 20110825, end: 20111001
  2. PIROXICAM [Suspect]
     Dosage: 20 MG (20 MG, 1 IN 1 AS REQUIRED)
     Route: 048
     Dates: start: 20110825, end: 20111001
  3. VALSARTAN AND HYDROCHLOROTHIAZIDE [Concomitant]
  4. VITAMIN B1 B6(PYRIDOXINE HYDROCHLORIDE, THIAMINE HYDROCHLORIDE) [Concomitant]
  5. CHONDROSULF (CHONDROITIN SULFATE SODIUM) [Concomitant]

REACTIONS (5)
  - NO THERAPEUTIC RESPONSE [None]
  - PANCYTOPENIA [None]
  - HAEMORRHAGE [None]
  - STAPHYLOCOCCAL INFECTION [None]
  - ERYSIPELAS [None]
